FAERS Safety Report 15431516 (Version 1)
Quarter: 2018Q4

REPORT INFORMATION
  Report Type: Spontaneous
  Country: US (occurrence: US)
  Receive Date: 20180926
  Receipt Date: 20180926
  Transmission Date: 20190204
  Serious: No
  Sender: FDA-Public Use
  Company Number: US-SA-2018SA265844

PATIENT
  Sex: Male

DRUGS (1)
  1. ASPERCREME PAIN RELIEVING [Suspect]
     Active Substance: TROLAMINE SALICYLATE

REACTIONS (1)
  - Drug ineffective [Unknown]
